FAERS Safety Report 8056132-2 (Version None)
Quarter: 2012Q1

REPORT INFORMATION
  Report Type: 
  Country: None (occurrence: None)
  Receive Date: 20120119
  Receipt Date: 20120118
  Transmission Date: 20120608
  Serious: No
  Sender: FDA-Public Use
  Company Number: US-PFIZER INC-2012014799

PATIENT
  Sex: Female
  Weight: 77.098 kg

DRUGS (3)
  1. CELEBREX [Suspect]
     Indication: RHEUMATOID ARTHRITIS
     Dosage: 200 MG, 2X/DAY
     Route: 048
     Dates: start: 20120116, end: 20120116
  2. PLAQUENIL [Concomitant]
     Dosage: UNK
  3. CELEBREX [Suspect]
     Indication: ARTHROPATHY

REACTIONS (1)
  - DYSPEPSIA [None]
